FAERS Safety Report 16534771 (Version 2)
Quarter: 2019Q3

REPORT INFORMATION
  Report Type: Spontaneous
  Country: EG (occurrence: EG)
  Receive Date: 20190705
  Receipt Date: 20190715
  Transmission Date: 20191004
  Serious: Yes (Other)
  Sender: FDA-Public Use
  Company Number: EG-NOVOPROD-670196

PATIENT
  Age: 60 Year
  Sex: Female
  Weight: 65 kg

DRUGS (4)
  1. GAPTIN [Concomitant]
     Indication: NEUROPATHY PERIPHERAL
     Dosage: 1TAB AM /1 TAB PM(STARTED FROM 2 YEARS)
     Route: 048
  2. HIBIOTIC [Concomitant]
     Indication: ANTIBIOTIC THERAPY
     Dosage: EVERY 8 HOURS(FROM 1 YEAR AND HALF)
     Route: 048
  3. MIXTARD 30 HM PENFILL [Suspect]
     Active Substance: INSULIN HUMAN
     Indication: DIABETES MELLITUS
     Dosage: 90 IU, QD(55 IU AM -35 IU PM)
     Route: 058
  4. BORGASTATIN [Concomitant]
     Indication: HYPERLIPIDAEMIA
     Dosage: 1 TABLET NIGHT (FROM 1 YEAR)
     Route: 048

REACTIONS (1)
  - Diabetic foot [Not Recovered/Not Resolved]
